FAERS Safety Report 6320026-0 (Version None)
Quarter: 2009Q3

REPORT INFORMATION
  Report Type: 
  Country: None (occurrence: None)
  Receive Date: 20090822
  Receipt Date: 20081010
  Transmission Date: 20100115
  Serious: No
  Sender: FDA-Public Use
  Company Number: US-ABBOTT-08P-163-0481687-00

PATIENT
  Sex: Male
  Weight: 104.42 kg

DRUGS (6)
  1. NIASPAN [Suspect]
     Indication: BLOOD CHOLESTEROL INCREASED
     Route: 048
     Dates: start: 20080829, end: 20080904
  2. NIASPAN [Suspect]
     Route: 048
     Dates: start: 20080905
  3. CLOPIDOGREL [Concomitant]
     Indication: CORONARY ARTERIAL STENT INSERTION
     Dosage: 75 MG
     Route: 048
     Dates: start: 20070501
  4. IRBESARTAN AND HYDROCHLOROTHIAZIDE [Concomitant]
     Indication: BLOOD PRESSURE
     Dosage: 300/12.5 MG
     Route: 048
  5. AMIODARONE [Concomitant]
     Indication: ARRHYTHMIA
     Route: 048
  6. ASPIRIN [Concomitant]
     Indication: CARDIOVASCULAR EVENT PROPHYLAXIS
     Dosage: 81 MG
     Route: 048

REACTIONS (4)
  - DIZZINESS [None]
  - EAR INFECTION [None]
  - ERYTHEMA [None]
  - FLUSHING [None]
